FAERS Safety Report 9198801 (Version 1)
Quarter: 2013Q1

REPORT INFORMATION
  Report Type: Report from Study
  Country: JP (occurrence: JP)
  Receive Date: 20130329
  Receipt Date: 20130329
  Transmission Date: 20140127
  Serious: Yes (Hospitalization)
  Sender: FDA-Public Use
  Company Number: JP-009507513-1303JPN013482

PATIENT
  Age: 64 Year
  Sex: Female

DRUGS (12)
  1. ZOLINZA CAPSULES 100MG [Suspect]
     Indication: MYCOSIS FUNGOIDES
     Dosage: 400 MG, QD
     Route: 048
     Dates: start: 20120807, end: 20120904
  2. ZOLINZA CAPSULES 100MG [Suspect]
     Dosage: 300 MG, QD
     Route: 048
     Dates: start: 20121016
  3. PREDNISOLONE [Suspect]
     Indication: MYCOSIS FUNGOIDES
     Dosage: 3 DF, BID
     Route: 048
     Dates: start: 20120524, end: 20120829
  4. PREDNISOLONE [Suspect]
     Dosage: 3 DF, TID
     Route: 048
     Dates: start: 20120830
  5. TAKEPRON [Concomitant]
     Indication: GASTROOESOPHAGEAL REFLUX DISEASE
     Dosage: 1 DF, QD
     Route: 048
  6. BAYASPIRIN [Concomitant]
     Indication: PROPHYLAXIS
     Dosage: 100 MG, QD
     Route: 048
  7. CALBLOCK [Concomitant]
     Indication: HYPERTENSION
     Dosage: 16 MG, QD
     Route: 048
  8. XYZAL [Concomitant]
     Indication: MYCOSIS FUNGOIDES
     Dosage: 5 MG, QD
     Route: 048
  9. JANUVIA TABLETS 50MG [Concomitant]
     Indication: DIABETES MELLITUS
     Dosage: 50 MG, QD
     Route: 048
  10. BEZATOL [Concomitant]
     Indication: HYPERLIPIDAEMIA
     Dosage: 200 MG, BID
     Route: 048
  11. ECARD HD [Concomitant]
     Indication: HYPERTENSION
     Dosage: 1 DF, QD
     Route: 048
  12. PANTOSIN [Concomitant]
     Indication: CONSTIPATION
     Dosage: 100 MG, BID
     Route: 048

REACTIONS (1)
  - Renal disorder [Recovering/Resolving]
